FAERS Safety Report 18187367 (Version 1)
Quarter: 2020Q3

REPORT INFORMATION
  Report Type: Spontaneous
  Country: FR (occurrence: FR)
  Receive Date: 20200824
  Receipt Date: 20200824
  Transmission Date: 20201103
  Serious: Yes (Death)
  Sender: FDA-Public Use
  Company Number: FR-PFIZER INC-2020325412

PATIENT
  Age: 67 Year
  Sex: Male
  Weight: 69.5 kg

DRUGS (1)
  1. VORICONAZOLE. [Suspect]
     Active Substance: VORICONAZOLE
     Indication: SEPSIS
     Dosage: 480 MG, 1X/DAY
     Route: 042
     Dates: start: 20200630, end: 20200717

REACTIONS (2)
  - Overdose [Fatal]
  - Encephalopathy [Fatal]

NARRATIVE: CASE EVENT DATE: 202007
